FAERS Safety Report 6327551-7 (Version None)
Quarter: 2009Q3

REPORT INFORMATION
  Report Type: 
  Country: None (occurrence: None)
  Receive Date: 20090825
  Receipt Date: 20090817
  Transmission Date: 20100115
  Serious: Yes (Other)
  Sender: FDA-Public Use
  Company Number: US-ELI_LILLY_AND_COMPANY-US200908003534

PATIENT
  Sex: Female

DRUGS (2)
  1. HUMALOG [Suspect]
     Route: 058
  2. REGLAN [Concomitant]

REACTIONS (7)
  - ANXIETY [None]
  - BLOOD GLUCOSE DECREASED [None]
  - BLOOD GLUCOSE INCREASED [None]
  - DIABETIC RETINOPATHY [None]
  - POOR QUALITY DRUG ADMINISTERED [None]
  - VISION BLURRED [None]
  - VISUAL ACUITY REDUCED [None]
